FAERS Safety Report 6753663-X (Version None)
Quarter: 2010Q2

REPORT INFORMATION
  Report Type: 
  Country: None (occurrence: None)
  Receive Date: 20100603
  Receipt Date: 20100527
  Transmission Date: 20101027
  Serious: Yes (Death, Hospitalization, Disabling)
  Sender: FDA-Public Use
  Company Number: GB-ROCHE-657929

PATIENT
  Sex: Male
  Weight: 76 kg

DRUGS (2)
  1. BEVACIZUMAB [Suspect]
     Indication: COLON CANCER
     Dosage: FORM: INFUSION. DOSE: 7.5 MG/KG, STRENGTH ADDED PER PROTOCOL, CYCLE NO: 4.
     Route: 042
     Dates: start: 20090630
  2. CAPECITABINE [Suspect]
     Indication: COLON CANCER
     Dosage: FORM AND STRENGTH REPORTED PER PROTOCOL, CYCLE NO: 4
     Route: 048
     Dates: start: 20090630

REACTIONS (3)
  - CEREBRAL HAEMORRHAGE [None]
  - CONFUSIONAL STATE [None]
  - HAEMORRHAGE INTRACRANIAL [None]
